FAERS Safety Report 26132236 (Version 2)
Quarter: 2025Q4

REPORT INFORMATION
  Report Type: Report from Study
  Country: EU (occurrence: EU)
  Receive Date: 20251208
  Receipt Date: 20251215
  Transmission Date: 20260117
  Serious: Yes (Life-Threatening, Hospitalization, Other)
  Sender: MYLAN
  Company Number: EU-BRISTOL-MYERS SQUIBB COMPANY-2025-118389

PATIENT
  Age: 52 Year
  Sex: Male

DRUGS (12)
  1. LENALIDOMIDE [Suspect]
     Active Substance: LENALIDOMIDE
     Indication: Plasma cell myeloma
     Dosage: 10 MILLIGRAM
     Dates: start: 20250716, end: 20250828
  2. DEXAMETHASONE [Suspect]
     Active Substance: DEXAMETHASONE
     Indication: Plasma cell myeloma
     Dosage: 40 MILLIGRAM
     Dates: start: 20250716, end: 20250827
  3. DARATUMUMAB [Suspect]
     Active Substance: DARATUMUMAB
     Indication: Plasma cell myeloma
     Dosage: 1800 MILLIGRAM
     Dates: start: 20250716, end: 20250827
  4. METFORMIN [Concomitant]
     Active Substance: METFORMIN HYDROCHLORIDE
     Indication: Diabetes mellitus
     Dosage: 1000 MILLIGRAM
  5. ATORVASTATIN [Concomitant]
     Active Substance: ATORVASTATIN
     Indication: Blood cholesterol
     Dosage: 40 MILLIGRAM
  6. ACYCLOVIR [Concomitant]
     Active Substance: ACYCLOVIR
     Indication: Antiviral prophylaxis
     Dosage: 40 MILLIGRAM
  7. SERTRALINE [Concomitant]
     Active Substance: SERTRALINE HYDROCHLORIDE
     Indication: Depression
     Dosage: 50 MILLIGRAM
  8. BISOPROLOL [Concomitant]
     Active Substance: BISOPROLOL
     Indication: Cardiac failure
     Dosage: 5 MILLIGRAM
  9. NALOXONE HYDROCHLORIDE\OXYCODONE HYDROCHLORIDE [Concomitant]
     Active Substance: NALOXONE HYDROCHLORIDE\OXYCODONE HYDROCHLORIDE
     Indication: Pain
     Dosage: UNK
  10. BACTRIM [Concomitant]
     Active Substance: SULFAMETHOXAZOLE\TRIMETHOPRIM
     Indication: Infection
     Dosage: 960 MILLIGRAM
  11. ATORVASTATIN CALCIUM [Concomitant]
     Active Substance: ATORVASTATIN CALCIUM
     Indication: Anxiety
     Dosage: UNK
  12. DAPAGLIFLOZIN [Concomitant]
     Active Substance: DAPAGLIFLOZIN
     Indication: Diuretic therapy
     Dosage: 10 MILLIGRAM

REACTIONS (5)
  - Embolism [Recovered/Resolved]
  - Acute respiratory failure [Recovered/Resolved]
  - Duodenal ulcer haemorrhage [Recovered/Resolved]
  - Renal failure [Recovered/Resolved]
  - Febrile neutropenia [Recovered/Resolved]

NARRATIVE: CASE EVENT DATE: 20250805
